FAERS Safety Report 8120929-0 (Version None)
Quarter: 2012Q1

REPORT INFORMATION
  Report Type: 
  Country: None (occurrence: None)
  Receive Date: 20120208
  Receipt Date: 20120131
  Transmission Date: 20120608
  Serious: Yes (Hospitalization)
  Sender: FDA-Public Use
  Company Number: US-BAYER-2010-002115

PATIENT
  Sex: Female
  Weight: 79.365 kg

DRUGS (16)
  1. K-TAB [Concomitant]
     Dosage: 10 MEQ, UNK
     Dates: start: 20070310, end: 20080417
  2. NABUMETONE [Concomitant]
     Dosage: 500 MG, UNK
     Dates: start: 20081217, end: 20090521
  3. ETODOLAC [Concomitant]
     Dosage: 400 MG, UNK
     Dates: start: 20060919, end: 20061010
  4. HYDROCODONE BITARTRATE AND ACETAMINOPHEN [Concomitant]
     Dosage: UNK
     Dates: start: 20071105, end: 20081217
  5. CYCLOBENZAPRINE [Concomitant]
     Dosage: 10 MG, UNK
     Dates: start: 20071105
  6. PROCHLORPERAZINE [Concomitant]
     Dosage: 5 MG, UNK
     Dates: start: 20081011
  7. CITALOPRAM [Concomitant]
     Dosage: 20 MG, UNK
     Dates: start: 20090729
  8. YASMIN [Suspect]
     Dosage: UNK
     Route: 048
     Dates: start: 20050601, end: 20090801
  9. AMLODIPINE [Concomitant]
     Dosage: UNK
     Dates: start: 20080901
  10. CLARITHROMYCIN [Concomitant]
     Dosage: 500 MG, UNK
     Dates: start: 20080716
  11. YAZ [Suspect]
     Dosage: UNK
     Route: 048
     Dates: start: 20050601, end: 20090801
  12. TETRACYCLINE [Concomitant]
     Dosage: 500 MG, UNK
     Dates: start: 20080630
  13. AMOXICILLIN [Concomitant]
     Dosage: 500 MG, UNK
     Dates: start: 20080716
  14. CLARITIN [Concomitant]
     Dosage: 10 MG, UNK
     Route: 048
  15. OMEPRAZOLE [Concomitant]
     Dosage: 20 MG, UNK
     Dates: start: 20060919, end: 20090619
  16. HYDROCHLOROTHIAZIDE [Concomitant]
     Dosage: 25 MG, UNK
     Dates: start: 20070310, end: 20080414

REACTIONS (3)
  - PANCREATITIS [None]
  - CHOLELITHIASIS [None]
  - GALLBLADDER DISORDER [None]
